FAERS Safety Report 26046508 (Version 1)
Quarter: 2025Q4

REPORT INFORMATION
  Report Type: Report from Study
  Country: US (occurrence: None)
  Receive Date: 20251114
  Receipt Date: 20251114
  Transmission Date: 20260117
  Serious: Yes (Hospitalization)
  Sender: CHIESI
  Company Number: US-CHIESI-2025CHF08069

PATIENT
  Sex: Female
  Weight: 47.6 kg

DRUGS (1)
  1. BIRCH BARK\HERBALS [Suspect]
     Active Substance: BIRCH BARK\HERBALS
     Indication: Epidermolysis bullosa
     Dosage: UNK, PRN
     Dates: start: 20240911

REACTIONS (2)
  - Ill-defined disorder [Recovered/Resolved]
  - Product administration interrupted [Not Recovered/Not Resolved]
